FAERS Safety Report 9282590 (Version 2)
Quarter: 2013Q2

REPORT INFORMATION
  Report Type: Report from Study
  Country: US (occurrence: US)
  Receive Date: 20130510
  Receipt Date: 20130528
  Transmission Date: 20140414
  Serious: Yes (Other)
  Sender: FDA-Public Use
  Company Number: PHEH2013US009375

PATIENT
  Age: 34 Year
  Sex: Female
  Weight: 71.66 kg

DRUGS (9)
  1. GILENYA [Suspect]
     Indication: MULTIPLE SCLEROSIS
     Dosage: 0.5 MG, QD
     Route: 048
     Dates: start: 201110, end: 20130424
  2. GILENYA [Suspect]
     Dosage: 0.5 MG, QD
     Route: 048
  3. COPAXONE [Concomitant]
     Indication: MULTIPLE SCLEROSIS
  4. MIRAPEX [Concomitant]
     Indication: RESTLESS LEGS SYNDROME
     Dosage: 0.125 MG, TID
  5. MIRAPEX [Concomitant]
     Dosage: 0.25 MG, 5QD
  6. CELEXA [Concomitant]
     Indication: MULTIPLE SCLEROSIS
     Dosage: 20 MG, QD
  7. LIDODERM [Concomitant]
  8. VITAMIN D [Concomitant]
  9. CENTRUM [Concomitant]

REACTIONS (16)
  - Multiple sclerosis [Not Recovered/Not Resolved]
  - Hemiparesis [Recovering/Resolving]
  - Gait spastic [Not Recovered/Not Resolved]
  - Extensor plantar response [Unknown]
  - Muscular weakness [Unknown]
  - Musculoskeletal stiffness [Unknown]
  - Urinary retention [Unknown]
  - Sensory disturbance [Unknown]
  - Micturition urgency [Unknown]
  - Pain in extremity [Recovering/Resolving]
  - Neuritis [Unknown]
  - Muscle spasticity [Unknown]
  - Paraesthesia [Unknown]
  - Chest pain [Unknown]
  - Back pain [Not Recovered/Not Resolved]
  - Night sweats [Unknown]
